FAERS Safety Report 7988832-4 (Version None)
Quarter: 2011Q4

REPORT INFORMATION
  Report Type: 
  Country: None (occurrence: None)
  Receive Date: 20111215
  Receipt Date: 20111215
  Transmission Date: 20120403
  Serious: Yes (Other)
  Sender: FDA-Public Use
  Company Number: None

PATIENT
  Age: 78 Year
  Sex: Female

DRUGS (4)
  1. DILTIAZEM HCL [Concomitant]
  2. REVLIMID [Suspect]
     Indication: MULTIPLE MYELOMA
     Dosage: 15 MG DAILY X21D/28D ORALLY
     Route: 048
     Dates: start: 20100801, end: 20111101
  3. CYANOCOBALAMIN [Concomitant]
  4. ASPIRIN [Concomitant]

REACTIONS (1)
  - NEUTROPENIA [None]
